FAERS Safety Report 8727540 (Version 2)
Quarter: 2012Q4

REPORT INFORMATION
  Report Type: 
  Country: US (occurrence: US)
  Receive Date: 20120816
  Receipt Date: 20121120
  Transmission Date: 20130627
  Serious: No
  Sender: FDA-Public Use
  Company Number: US-ALLERGAN-1209906US

PATIENT
  Age: 35 Year
  Sex: Female

DRUGS (2)
  1. LASTACAFT [Suspect]
     Indication: EYE ALLERGY
     Dosage: 1 Gtt OU, qam prn
     Route: 047
     Dates: start: 201205, end: 20120714
  2. LASTACAFT [Suspect]
     Dosage: single administration
     Route: 047
     Dates: start: 201205, end: 201205

REACTIONS (9)
  - Chemical burns of eye [Recovered/Resolved]
  - Conjunctivitis [Recovered/Resolved]
  - Conjunctival oedema [Recovered/Resolved]
  - Eye infection [Recovered/Resolved]
  - Eyelid oedema [Recovered/Resolved]
  - Erythema of eyelid [Recovered/Resolved]
  - Conjunctival hyperaemia [Recovered/Resolved]
  - Eye pain [Recovered/Resolved]
  - Ocular hyperaemia [Recovered/Resolved]
